FAERS Safety Report 5007601-0 (Version None)
Quarter: 2006Q2

REPORT INFORMATION
  Report Type: 
  Country: None (occurrence: None)
  Receive Date: 20060518
  Receipt Date: 20060509
  Transmission Date: 20061013
  Serious: Yes (Other)
  Sender: FDA-Public Use
  Company Number: 2006042556

PATIENT
  Age: 85 Year
  Sex: Female
  Weight: 60 kg

DRUGS (4)
  1. LYRICA [Suspect]
     Indication: RADICULAR PAIN
     Dosage: 300 MG (1 D), ORAL
     Route: 048
     Dates: start: 20060101, end: 20060327
  2. OXYCODONE (OXYCODONE) [Concomitant]
  3. LORZAAR (LOSARTAN POTASSIUM) [Concomitant]
  4. SYMBICORT (BUDESONIDE, FORMOTEROL FUMARATE) [Concomitant]

REACTIONS (5)
  - DYSPNOEA [None]
  - HYPERTENSIVE CRISIS [None]
  - NAUSEA [None]
  - OEDEMA [None]
  - TACHYCARDIA [None]
